FAERS Safety Report 10947593 (Version 1)
Quarter: 2015Q1

REPORT INFORMATION
  Report Type: Spontaneous
  Country: US (occurrence: US)
  Receive Date: 20150323
  Receipt Date: 20150323
  Transmission Date: 20150721
  Serious: Yes (Other)
  Sender: FDA-Public Use
  Company Number: US-MYLANLABS-2015M1004482

PATIENT

DRUGS (6)
  1. EMSAM [Suspect]
     Active Substance: SELEGILINE
     Indication: MUSCLE CONTRACTIONS INVOLUNTARY
     Dosage: 9 MG, QD,CHANGING THE PATCH DAILY
     Route: 062
     Dates: start: 201412
  2. PRAZOSIN HYDROCHLORIDE. [Suspect]
     Active Substance: PRAZOSIN HYDROCHLORIDE
     Indication: NIGHT SWEATS
     Dosage: 1 MG, HS
     Route: 048
     Dates: start: 201412, end: 201412
  3. EMSAM [Suspect]
     Active Substance: SELEGILINE
     Indication: OFF LABEL USE
  4. EMSAM [Suspect]
     Active Substance: SELEGILINE
     Indication: OFF LABEL USE
  5. EMSAM [Suspect]
     Active Substance: SELEGILINE
     Indication: MUSCLE CONTRACTIONS INVOLUNTARY
     Dosage: 12 MG, QD,CHANGING THE PATCH DAILY
     Route: 062
     Dates: start: 201412, end: 201412
  6. PRAZOSIN HYDROCHLORIDE. [Suspect]
     Active Substance: PRAZOSIN HYDROCHLORIDE
     Indication: OFF LABEL USE

REACTIONS (4)
  - Somnolence [Recovered/Resolved]
  - Drug interaction [Recovered/Resolved]
  - Libido increased [Not Recovered/Not Resolved]
  - Bedridden [Recovered/Resolved]

NARRATIVE: CASE EVENT DATE: 201412
